FAERS Safety Report 6731681-5 (Version None)
Quarter: 2010Q2

REPORT INFORMATION
  Report Type: 
  Country: None (occurrence: None)
  Receive Date: 20100519
  Receipt Date: 20100514
  Transmission Date: 20101027
  Serious: Yes (Hospitalization)
  Sender: FDA-Public Use
  Company Number: JP-EISAI INC.-E2090-01174-SPO-JP

PATIENT
  Age: 18 Year
  Sex: Male

DRUGS (2)
  1. EXCEGRAN [Suspect]
     Indication: TEMPORAL LOBE EPILEPSY
     Route: 048
     Dates: start: 20100427, end: 20100510
  2. TEGRETOL [Concomitant]
     Dates: end: 20100427

REACTIONS (1)
  - AGRANULOCYTOSIS [None]
